FAERS Safety Report 4657020-1 (Version None)
Quarter: 2005Q2

REPORT INFORMATION
  Report Type: 
  Country: None (occurrence: None)
  Receive Date: 20050408
  Receipt Date: 20041228
  Transmission Date: 20051028
  Serious: No
  Sender: FDA-Public Use
  Company Number: 230240M04USA

PATIENT
  Sex: Female

DRUGS (1)
  1. REBIF [Suspect]
     Indication: MULTIPLE SCLEROSIS
     Dates: start: 20041209, end: 20041201

REACTIONS (5)
  - ASTHENIA [None]
  - PRURITUS [None]
  - SWELLING FACE [None]
  - THROAT TIGHTNESS [None]
  - VOMITING [None]
